FAERS Safety Report 8376981-0 (Version None)
Quarter: 2012Q2

REPORT INFORMATION
  Report Type: 
  Country: None (occurrence: None)
  Receive Date: 20120522
  Receipt Date: 20120521
  Transmission Date: 20120825
  Serious: Yes (Death)
  Sender: FDA-Public Use
  Company Number: CN-ROCHE-1070545

PATIENT
  Age: 35 Year
  Sex: Male

DRUGS (2)
  1. CHEMOTHERAPY DRUG NOS [Concomitant]
     Indication: DIFFUSE LARGE B-CELL LYMPHOMA
     Route: 041
     Dates: start: 20110801
  2. MABTHERA [Suspect]
     Indication: DIFFUSE LARGE B-CELL LYMPHOMA
     Route: 041
     Dates: start: 20110801

REACTIONS (1)
  - DEATH [None]
